FAERS Safety Report 19491923 (Version 1)
Quarter: 2021Q3

REPORT INFORMATION
  Report Type: Spontaneous
  Country: US (occurrence: US)
  Receive Date: 20210705
  Receipt Date: 20210705
  Transmission Date: 20211014
  Serious: Yes (Hospitalization, Other)
  Sender: FDA-Public Use
  Company Number: US-AUROBINDO-AUR-APL-2021-027874

PATIENT
  Age: 16 Year
  Sex: Female

DRUGS (22)
  1. ESCITALOPRAM [Suspect]
     Active Substance: ESCITALOPRAM OXALATE
     Dosage: 10 MILLIGRAM, ON DAY 23 DECREASED
     Route: 065
  2. LAMOTRIGINE. [Concomitant]
     Active Substance: LAMOTRIGINE
     Dosage: 50 MILLIGRAM, ON DAY 28
     Route: 065
  3. LORAZEPAM. [Concomitant]
     Active Substance: LORAZEPAM
     Dosage: 2 MILLIGRAM, ON DAY 4, DAY 5, DAY 6, DAY 9, DAY 10, DAY 11, DAY 15, DAY 16, DAY 17 AND DAY 18.
     Route: 048
  4. LORAZEPAM. [Concomitant]
     Active Substance: LORAZEPAM
     Dosage: 1 MILLIGRAM, ON DAY 4 AND DAY 20
     Route: 048
  5. GUANFACINE. [Concomitant]
     Active Substance: GUANFACINE
     Dosage: 3 MILLIGRAM, 3MG ON DAY 8
     Route: 048
  6. GUANFACINE. [Concomitant]
     Active Substance: GUANFACINE
     Dosage: 4 MILLIGRAM, INCREASED TO 4MG ON DAY 17
     Route: 048
  7. LAMOTRIGINE. [Concomitant]
     Active Substance: LAMOTRIGINE
     Indication: AFFECTIVE DISORDER
     Dosage: 25 MILLIGRAM, ON DAY 23
     Route: 065
  8. ESCITALOPRAM [Suspect]
     Active Substance: ESCITALOPRAM OXALATE
     Dosage: 5 MILLIGRAM, ONCE A DAY, ONCE IN EVERY MORNING
     Route: 048
  9. ESCITALOPRAM [Suspect]
     Active Substance: ESCITALOPRAM OXALATE
     Dosage: 10 MILLIGRAM, ON DAY 6
     Route: 065
  10. FLUTICASONE. [Concomitant]
     Active Substance: FLUTICASONE
     Indication: ASTHMA
     Dosage: 1 PUFF EVERY MORNING
     Route: 065
  11. ESCITALOPRAM [Suspect]
     Active Substance: ESCITALOPRAM OXALATE
     Indication: DEPRESSION
     Dosage: 15 MILLIGRAM, ON DAY 8 INCREASED
     Route: 065
  12. LORAZEPAM. [Concomitant]
     Active Substance: LORAZEPAM
     Indication: AGGRESSION
     Dosage: 1 MILLIGRAM, ON DAY 21
     Route: 030
  13. GUANFACINE. [Concomitant]
     Active Substance: GUANFACINE
     Dosage: 2 MILLIGRAM, INCREASED TO 2 MG ON DAY 5 OF HER ADMISSION
     Route: 048
  14. GUANFACINE. [Concomitant]
     Active Substance: GUANFACINE
     Indication: ATTENTION DEFICIT HYPERACTIVITY DISORDER
     Dosage: 1 MILLIGRAM, EVERY HOUR, ADDED ON 4TH DAY OF ADMISSION
     Route: 048
  15. CHLORPROMAZINE. [Concomitant]
     Active Substance: CHLORPROMAZINE
     Indication: AGGRESSION
     Dosage: 25 MILLIGRAM, ON DAY 21
     Route: 030
  16. CHLORPROMAZINE. [Concomitant]
     Active Substance: CHLORPROMAZINE
     Dosage: 50 MILLIGRAM, ON DAY 2, DAY 6, DAY 22 AND DAY 29.
     Route: 030
  17. CHLORPROMAZINE. [Concomitant]
     Active Substance: CHLORPROMAZINE
     Dosage: 25 MILLIGRAM, ON DAY 20, DAY 21 AND DAY 23
     Route: 048
  18. LORAZEPAM. [Concomitant]
     Active Substance: LORAZEPAM
     Dosage: 2 MILLIGRAM, ON DAY 19 (1MG X 2)
     Route: 048
  19. LORAZEPAM. [Concomitant]
     Active Substance: LORAZEPAM
     Indication: AGITATION
     Dosage: 2 MILLIGRAM, ON DAY 22
     Route: 030
  20. TRAZODONE [Concomitant]
     Active Substance: TRAZODONE HYDROCHLORIDE
     Indication: INSOMNIA
     Dosage: 25 MILLIGRAM, ON DAY 1, DAY 2, DAY 8, DAY 10, DAY 12, DAY 13, DAY 15, DAY 19 AND DAY 20.
     Route: 065
  21. CHLORPROMAZINE. [Concomitant]
     Active Substance: CHLORPROMAZINE
     Indication: AGITATION
     Dosage: 100 MILLIGRAM, ON DAY 16 (50MG X 2)
     Route: 048
  22. CHLORPROMAZINE. [Concomitant]
     Active Substance: CHLORPROMAZINE
     Dosage: 50 MILLIGRAM, ON DAY 4, DAY 5, DAY 6, DAY 11, DAY 15, DAY 17, DAY 28 AND DAY 29.
     Route: 048

REACTIONS (1)
  - Abnormal behaviour [Recovering/Resolving]
